FAERS Safety Report 11421839 (Version 1)
Quarter: 2015Q3

REPORT INFORMATION
  Report Type: Spontaneous
  Country: US (occurrence: US)
  Receive Date: 20150827
  Receipt Date: 20150827
  Transmission Date: 20151125
  Serious: Yes (Hospitalization)
  Sender: FDA-Public Use
  Company Number: US-AMGEN-USASP2015086197

PATIENT
  Age: 58 Year
  Sex: Male

DRUGS (6)
  1. CENTRUM SELECT 50+ [Concomitant]
     Active Substance: VITAMINS
     Dosage: UNK
  2. METHYLPREDNISOLONE. [Concomitant]
     Active Substance: METHYLPREDNISOLONE
     Dosage: 4 MG, UNK
  3. OMEPRAZOLE. [Concomitant]
     Active Substance: OMEPRAZOLE
     Dosage: 20 MG, UNK
  4. LORATADINE. [Concomitant]
     Active Substance: LORATADINE
     Dosage: UNK
  5. CELECOXIB. [Concomitant]
     Active Substance: CELECOXIB
     Dosage: 200 MG, UNK
  6. ENBREL [Suspect]
     Active Substance: ETANERCEPT
     Indication: RHEUMATOID ARTHRITIS
     Dosage: 50 MG, QWK
     Route: 058
     Dates: start: 20051025

REACTIONS (7)
  - Upper limb fracture [Recovered/Resolved]
  - Facial bones fracture [Recovered/Resolved]
  - Lip injury [Recovered/Resolved]
  - Musculoskeletal disorder [Recovered/Resolved]
  - Cough [Recovering/Resolving]
  - Paranasal sinus hypersecretion [Recovering/Resolving]
  - Road traffic accident [Recovered/Resolved]

NARRATIVE: CASE EVENT DATE: 201406
